FAERS Safety Report 6636828-7 (Version None)
Quarter: 2010Q1

REPORT INFORMATION
  Report Type: 
  Country: None (occurrence: None)
  Receive Date: 20100316
  Receipt Date: 20100305
  Transmission Date: 20100710
  Serious: Yes (Other)
  Sender: FDA-Public Use
  Company Number: GB-JNJFOC-20100206969

PATIENT
  Sex: Female

DRUGS (4)
  1. REMICADE [Suspect]
     Indication: CROHN'S DISEASE
     Route: 042
  2. REMICADE [Suspect]
     Route: 042
  3. REMICADE [Suspect]
     Route: 042
  4. PENTASA [Concomitant]

REACTIONS (4)
  - DENTAL CARIES [None]
  - SQUAMOUS CELL CARCINOMA [None]
  - TEETH BRITTLE [None]
  - VAGINAL FISTULA [None]
